FAERS Safety Report 16014596 (Version 1)
Quarter: 2019Q1

REPORT INFORMATION
  Report Type: Spontaneous
  Country: PT (occurrence: RU)
  Receive Date: 20190227
  Receipt Date: 20190227
  Transmission Date: 20190418
  Serious: Yes (Other)
  Sender: FDA-Public Use
  Company Number: PT-SUNOVION-2019SUN000825

PATIENT
  Age: 31 Year
  Sex: Female
  Weight: 65 kg

DRUGS (5)
  1. DYDROGESTERONE [Concomitant]
     Active Substance: DYDROGESTERONE
     Dosage: 40 MG, QD
  2. LEVEMIR [Concomitant]
     Active Substance: INSULIN DETEMIR
     Dosage: 15 MG, QD
  3. ESLICARBAZEPINE ACETATE [Suspect]
     Active Substance: ESLICARBAZEPINE ACETATE
     Indication: EPILEPSY
     Dosage: 400 MG
     Route: 048
  4. IODOMARIN [Concomitant]
     Active Substance: POTASSIUM IODIDE
     Dosage: 250 ?G, QD
  5. CLEXANE [Concomitant]
     Active Substance: ENOXAPARIN SODIUM
     Dosage: 0.4 MG, QD

REACTIONS (2)
  - Gestational diabetes [Unknown]
  - Exposure during pregnancy [Unknown]

NARRATIVE: CASE EVENT DATE: 2018
